FAERS Safety Report 9288180 (Version 1)
Quarter: 2013Q2

REPORT INFORMATION
  Report Type: Spontaneous
  Country: US (occurrence: US)
  Receive Date: 20130513
  Receipt Date: 20130513
  Transmission Date: 20140414
  Serious: Yes (Other)
  Sender: FDA-Public Use
  Company Number: US-RB-047554-12

PATIENT
  Age: 53 Year
  Sex: Female

DRUGS (4)
  1. SUBOXONE FILM [Suspect]
     Indication: DYSMENORRHOEA
     Dosage: SUBOXONE FILM
     Route: 060
     Dates: start: 201108, end: 2012
  2. SUBOXONE FILM [Suspect]
     Indication: BACK PAIN
     Dosage: SUBOXONE FILM, TAPERING DOSES
     Route: 065
     Dates: start: 201209, end: 201212
  3. SUBOXONE FILM [Suspect]
     Dosage: DOSING INFORMATION UNKNOWN
     Route: 060
     Dates: start: 201212
  4. KLONOPIN [Concomitant]
     Indication: PRODUCT USED FOR UNKNOWN INDICATION
     Dosage: UNKNOWN DOSING DETAILS; STARTED 17 YEARS AGO
     Route: 065

REACTIONS (9)
  - Therapeutic response unexpected [Not Recovered/Not Resolved]
  - Off label use [Not Recovered/Not Resolved]
  - Gingival disorder [Not Recovered/Not Resolved]
  - Underdose [Recovered/Resolved]
  - Toothache [Not Recovered/Not Resolved]
  - Dental caries [Not Recovered/Not Resolved]
  - Periodontitis [Not Recovered/Not Resolved]
  - Upper limb fracture [Not Recovered/Not Resolved]
  - Amenorrhoea [Not Recovered/Not Resolved]
